FAERS Safety Report 18014755 (Version 1)
Quarter: 2020Q3

REPORT INFORMATION
  Report Type: Spontaneous
  Country: JP (occurrence: JP)
  Receive Date: 20200713
  Receipt Date: 20200713
  Transmission Date: 20201103
  Serious: Yes (Hospitalization, Other)
  Sender: FDA-Public Use
  Company Number: PHJP2017JP032736

PATIENT
  Age: 52 Year
  Sex: Male
  Weight: 63 kg

DRUGS (12)
  1. CLOZARIL [Suspect]
     Active Substance: CLOZAPINE
     Indication: SCHIZOPHRENIA
     Dosage: UNK
     Route: 048
     Dates: start: 20130227
  2. PURSENNID (SENNOSIDE A+B CALCIUM) [Suspect]
     Active Substance: SENNOSIDES A AND B
     Dosage: UNK
     Route: 048
  3. FLUNITRAZEPAM [Suspect]
     Active Substance: FLUNITRAZEPAM
     Dosage: UNK, QD
     Route: 048
  4. PURSENNID (SENNOSIDE A+B CALCIUM) [Suspect]
     Active Substance: SENNOSIDES A AND B
     Indication: CONSTIPATION
     Dosage: 3 DF, QD
     Route: 048
     Dates: start: 20131210, end: 20171031
  5. PURSENNID (SENNOSIDE A+B CALCIUM) [Suspect]
     Active Substance: SENNOSIDES A AND B
     Dosage: 15 DF, UNK
     Route: 048
     Dates: start: 20171101, end: 20171101
  6. CLOZARIL [Suspect]
     Active Substance: CLOZAPINE
     Dosage: 3 DF, QID
     Route: 048
     Dates: start: 20131210, end: 20171031
  7. CLOZARIL [Suspect]
     Active Substance: CLOZAPINE
     Dosage: UNK, UNK, QID
     Route: 048
  8. OMEPRAZOLE. [Concomitant]
     Active Substance: OMEPRAZOLE
     Indication: DYSPEPSIA
     Dosage: 20 MG, QD
     Route: 048
     Dates: start: 20121215
  9. CLOZARIL [Suspect]
     Active Substance: CLOZAPINE
     Dosage: 57 DF, UNK
     Route: 048
     Dates: start: 20171101, end: 20171101
  10. FLUNITRAZEPAM [Suspect]
     Active Substance: FLUNITRAZEPAM
     Indication: INSOMNIA
     Dosage: 1 DF, QD
     Route: 048
     Dates: start: 20150907, end: 20171031
  11. FLUNITRAZEPAM [Suspect]
     Active Substance: FLUNITRAZEPAM
     Dosage: 5 DF, UNK
     Route: 048
     Dates: start: 20171101, end: 20171101
  12. AMITIZA [Concomitant]
     Active Substance: LUBIPROSTONE
     Indication: CONSTIPATION
     Dosage: 24 UG, BID
     Route: 048
     Dates: start: 20131210

REACTIONS (6)
  - Toxicity to various agents [Recovered/Resolved]
  - Fall [Unknown]
  - Suicide attempt [Unknown]
  - Therapeutic product effect incomplete [Unknown]
  - Intentional overdose [Unknown]
  - Accidental overdose [Unknown]

NARRATIVE: CASE EVENT DATE: 20171101
